FAERS Safety Report 9134841 (Version 1)
Quarter: 2013Q1

REPORT INFORMATION
  Report Type: Spontaneous
  Country: US (occurrence: US)
  Receive Date: 20130304
  Receipt Date: 20130304
  Transmission Date: 20140127
  Serious: No
  Sender: FDA-Public Use
  Company Number: US-PFIZER INC-2013072498

PATIENT
  Sex: Female
  Weight: 72.56 kg

DRUGS (2)
  1. VERAPAMIL HCL [Suspect]
     Indication: ATRIAL TACHYCARDIA
     Dosage: 180 MG, SINGLE
  2. DIGOXIN [Concomitant]
     Indication: ATRIAL TACHYCARDIA
     Dosage: 0.25 MG, DAILY

REACTIONS (2)
  - Emotional distress [Recovered/Resolved]
  - Heart rate irregular [Recovered/Resolved]
